FAERS Safety Report 8313904-4 (Version None)
Quarter: 2012Q2

REPORT INFORMATION
  Report Type: 
  Country: None (occurrence: None)
  Receive Date: 20120426
  Receipt Date: 20120426
  Transmission Date: 20120825
  Serious: No
  Sender: FDA-Public Use
  Company Number: None

PATIENT
  Age: 22 Year
  Sex: Female
  Weight: 77.11 kg

DRUGS (2)
  1. IMPLANON [Suspect]
  2. IMPLANON [Concomitant]

REACTIONS (15)
  - PAIN [None]
  - ABDOMINAL PAIN UPPER [None]
  - WEIGHT INCREASED [None]
  - ECONOMIC PROBLEM [None]
  - PELVIC INFLAMMATORY DISEASE [None]
  - MENORRHAGIA [None]
  - BREAST PAIN [None]
  - DYSMENORRHOEA [None]
  - OLIGOMENORRHOEA [None]
  - BACK PAIN [None]
  - OVARIAN CYST [None]
  - MOOD SWINGS [None]
  - ACNE [None]
  - HEADACHE [None]
  - DEPRESSION [None]
